FAERS Safety Report 14027651 (Version 2)
Quarter: 2017Q4

REPORT INFORMATION
  Report Type: Spontaneous
  Country: US (occurrence: US)
  Receive Date: 20170929
  Receipt Date: 20171009
  Transmission Date: 20180321
  Serious: Yes (Other)
  Sender: FDA-Public Use
  Company Number: US-PFIZER INC-2017417735

PATIENT
  Age: 4 Decade
  Sex: Female

DRUGS (2)
  1. LEXISCAN [Suspect]
     Active Substance: REGADENOSON
     Dosage: UNK (0.4 MG/5 ML, ONCE)
     Route: 042
  2. AMINOPHYLLINE. [Suspect]
     Active Substance: AMINOPHYLLINE
     Dosage: UNK (0.4 MG/5 ML, ONCE)
     Route: 042

REACTIONS (2)
  - Disease recurrence [Recovered/Resolved]
  - Seizure [Recovered/Resolved]
